FAERS Safety Report 4808387-2 (Version None)
Quarter: 2005Q4

REPORT INFORMATION
  Report Type: 
  Country: None (occurrence: None)
  Receive Date: 20051021
  Receipt Date: 20051007
  Transmission Date: 20060501
  Serious: Yes (Life-Threatening, Hospitalization, Other)
  Sender: FDA-Public Use
  Company Number: GB-2005-018216

PATIENT
  Age: 67 Year
  Sex: Female

DRUGS (2)
  1. ULTRAVIST 300 [Suspect]
     Indication: ARTERIOGRAM CORONARY
     Dosage: 80 ML, 1 DOSE, INTRA-ARTERIAL
     Route: 013
     Dates: start: 20050825, end: 20050825
  2. DIAMORPHINE (DIAMORPHINE) [Concomitant]

REACTIONS (5)
  - BLOOD PRESSURE DECREASED [None]
  - CARDIAC ARREST [None]
  - CARDIAC PROCEDURE COMPLICATION [None]
  - URTICARIA [None]
  - VENTRICULAR FIBRILLATION [None]
